FAERS Safety Report 4765314-4 (Version None)
Quarter: 2005Q3

REPORT INFORMATION
  Report Type: 
  Country: None (occurrence: None)
  Receive Date: 20050909
  Receipt Date: 20050324
  Transmission Date: 20060218
  Serious: Yes (Hospitalization, Disabling)
  Sender: FDA-Public Use
  Company Number: US-MERCK-0503USA04555

PATIENT
  Age: 44 Year
  Sex: Male
  Weight: 82 kg

DRUGS (7)
  1. VIOXX [Suspect]
     Indication: ARTHRITIS
     Route: 048
     Dates: start: 19990101, end: 20000401
  2. WELLBUTRIN [Concomitant]
     Route: 065
  3. ALTACE [Concomitant]
     Route: 065
  4. ATIVAN [Concomitant]
     Route: 065
  5. SONATA [Concomitant]
     Route: 065
  6. HYDRODIURIL [Concomitant]
     Route: 065
  7. TYLENOL [Concomitant]
     Route: 065
     Dates: start: 20000301, end: 20000301

REACTIONS (9)
  - ANGINA PECTORIS [None]
  - ANGINA UNSTABLE [None]
  - ATHEROSCLEROSIS [None]
  - BLOOD TRIGLYCERIDES INCREASED [None]
  - CORONARY ARTERY DISEASE [None]
  - CORONARY ARTERY OCCLUSION [None]
  - DEPRESSION [None]
  - DYSPEPSIA [None]
  - MYOCARDIAL INFARCTION [None]
